FAERS Safety Report 6648319-8 (Version None)
Quarter: 2010Q1

REPORT INFORMATION
  Report Type: 
  Country: None (occurrence: None)
  Receive Date: 20100324
  Receipt Date: 20100315
  Transmission Date: 20100710
  Serious: Yes (Hospitalization, Other)
  Sender: FDA-Public Use
  Company Number: US-BAYER-201013201BCC

PATIENT
  Age: 75 Year
  Sex: Female
  Weight: 61 kg

DRUGS (7)
  1. ASPIRIN [Suspect]
     Indication: NEURALGIA
     Dosage: UNIT DOSE: 325 MG
     Route: 048
  2. PLAVIX [Concomitant]
     Route: 065
  3. UNKNOWN ACID REDUCER [Concomitant]
     Route: 065
  4. NEURONTIN [Concomitant]
     Route: 065
  5. DIOVAN [Concomitant]
     Route: 065
  6. AVANDIA [Concomitant]
     Route: 065
  7. METFORMIN HCL [Concomitant]
     Route: 065

REACTIONS (1)
  - GASTRIC ULCER [None]
